FAERS Safety Report 24607802 (Version 2)
Quarter: 2025Q3

REPORT INFORMATION
  Report Type: Spontaneous
  Country: EU (occurrence: EU)
  Receive Date: 20241112
  Receipt Date: 20250930
  Transmission Date: 20251021
  Serious: Yes (Hospitalization)
  Sender: BAUSCH AND LOMB
  Company Number: EU-JNJFOC-20241107167

PATIENT
  Age: 79 Year
  Sex: Female

DRUGS (10)
  1. DEXAMETHASONE [Suspect]
     Active Substance: DEXAMETHASONE
     Indication: Plasma cell myeloma
     Route: 065
     Dates: start: 20220224, end: 20220316
  2. DEXAMETHASONE [Suspect]
     Active Substance: DEXAMETHASONE
     Route: 065
  3. TOLODODEKIN ALFA [Suspect]
     Active Substance: TOLODODEKIN ALFA
     Indication: Plasma cell myeloma
     Route: 065
     Dates: start: 20220224, end: 20220315
  4. TOLODODEKIN ALFA [Suspect]
     Active Substance: TOLODODEKIN ALFA
     Route: 065
  5. LENALIDOMIDE [Suspect]
     Active Substance: LENALIDOMIDE
     Indication: Plasma cell myeloma
     Route: 065
     Dates: start: 20220224, end: 20220327
  6. LENALIDOMIDE [Suspect]
     Active Substance: LENALIDOMIDE
     Route: 065
  7. BACTRIM [Concomitant]
     Active Substance: SULFAMETHOXAZOLE\TRIMETHOPRIM
     Indication: Antibiotic prophylaxis
     Dates: start: 20220224
  8. ACYCLOVIR [Concomitant]
     Active Substance: ACYCLOVIR
     Indication: Antiviral prophylaxis
     Dates: start: 20220224
  9. LANSOPRAZOLE [Concomitant]
     Active Substance: LANSOPRAZOLE
     Indication: Gastrointestinal disorder therapy
     Dates: start: 20220224
  10. ARIXTRA [Concomitant]
     Active Substance: FONDAPARINUX SODIUM
     Indication: Anticoagulant therapy
     Dates: start: 20220224

REACTIONS (1)
  - Pneumonia [Recovered/Resolved]

NARRATIVE: CASE EVENT DATE: 20220328
